FAERS Safety Report 6466048-0 (Version None)
Quarter: 2009Q4

REPORT INFORMATION
  Report Type: 
  Country: None (occurrence: None)
  Receive Date: 20091202
  Receipt Date: 20091124
  Transmission Date: 20100525
  Serious: Yes (Other)
  Sender: FDA-Public Use
  Company Number: JP-JNJFOC-20090904504

PATIENT
  Sex: Male
  Weight: 55 kg

DRUGS (10)
  1. ITRIZOLE [Suspect]
     Route: 041
     Dates: start: 20090312, end: 20090321
  2. ITRIZOLE [Suspect]
     Indication: BRONCHOPULMONARY ASPERGILLOSIS
     Dosage: 400MG-200MG PER DAY
     Route: 041
     Dates: start: 20090312, end: 20090321
  3. ITRIZOLE [Suspect]
     Indication: DRUG USE FOR UNKNOWN INDICATION
     Route: 048
     Dates: start: 20090322, end: 20090413
  4. PRIMOBOLAN [Concomitant]
     Indication: MYELODYSPLASTIC SYNDROME
     Route: 048
     Dates: start: 20071001
  5. PREDNISOLONE [Concomitant]
     Indication: MYELODYSPLASTIC SYNDROME
     Route: 048
     Dates: start: 20071001
  6. ALFAROL [Concomitant]
     Indication: MYELODYSPLASTIC SYNDROME
     Route: 048
     Dates: start: 20071001
  7. FERROMIA [Concomitant]
     Indication: MYELODYSPLASTIC SYNDROME
     Route: 048
     Dates: start: 20071001
  8. PROTECADIN [Concomitant]
     Indication: GASTRIC ULCER
     Route: 048
     Dates: start: 20071001
  9. METHYCOBAL [Concomitant]
     Indication: HERPES SIMPLEX
     Route: 048
     Dates: start: 20071001
  10. ARASENA-A [Concomitant]
     Indication: HERPES SIMPLEX
     Route: 061

REACTIONS (4)
  - BRAIN NATRIURETIC PEPTIDE INCREASED [None]
  - CARDIAC FAILURE [None]
  - HYPOKALAEMIA [None]
  - LOCALISED OEDEMA [None]
